FAERS Safety Report 4822838-9 (Version None)
Quarter: 2005Q4

REPORT INFORMATION
  Report Type: 
  Country: None (occurrence: None)
  Receive Date: 20051108
  Receipt Date: 20051018
  Transmission Date: 20060501
  Serious: Yes (Death)
  Sender: FDA-Public Use
  Company Number: US-SANOFI-SYNTHELABO-F03200500158

PATIENT
  Age: 73 Year
  Sex: Male
  Weight: 80.9 kg

DRUGS (3)
  1. ELOXATIN [Suspect]
     Indication: OESOPHAGEAL CARCINOMA
     Dosage: 98.5 MG DAY 1 AND DAY 8
     Route: 042
     Dates: start: 20051007, end: 20051007
  2. TAXOTERE [Suspect]
     Indication: OESOPHAGEAL CARCINOMA
     Dosage: 68.95 MG DAY 1 AND DAY 8
     Route: 042
     Dates: start: 20051007, end: 20051007
  3. CAPECITABINE [Suspect]
     Indication: OESOPHAGEAL CARCINOMA
     Dosage: 3000 MG DAYS 1 TO 10
     Route: 048
     Dates: start: 20050930, end: 20051007

REACTIONS (10)
  - APNOEIC ATTACK [None]
  - BACK PAIN [None]
  - BRONCHITIS [None]
  - CARDIAC ARREST [None]
  - CHRONIC OBSTRUCTIVE PULMONARY DISEASE [None]
  - DYSPNOEA [None]
  - FATIGUE [None]
  - LOSS OF CONSCIOUSNESS [None]
  - PRODUCTIVE COUGH [None]
  - WHEEZING [None]
